FAERS Safety Report 4358276-5 (Version None)
Quarter: 2004Q2

REPORT INFORMATION
  Report Type: 
  Country: None (occurrence: None)
  Receive Date: 20040514
  Receipt Date: 20040507
  Transmission Date: 20050107
  Serious: Yes (Disabling, Other)
  Sender: FDA-Public Use
  Company Number: BR-BRISTOL-MYERS SQUIBB COMPANY-12581864

PATIENT
  Age: 55 Year
  Sex: Female

DRUGS (3)
  1. BLINDED: MURAGLITAZAR [Suspect]
     Indication: DIABETES MELLITUS NON-INSULIN-DEPENDENT
     Route: 048
     Dates: start: 20040311
  2. METFORMIN HCL [Suspect]
     Route: 048
     Dates: start: 19950901
  3. FLUCONAZOLE [Concomitant]
     Dates: start: 20040325

REACTIONS (3)
  - ANKLE FRACTURE [None]
  - DIZZINESS [None]
  - SYNCOPE [None]
